FAERS Safety Report 14261636 (Version 1)
Quarter: 2017Q4

REPORT INFORMATION
  Report Type: Spontaneous
  Country: US (occurrence: None)
  Receive Date: 20171208
  Receipt Date: 20171208
  Transmission Date: 20180321
  Serious: Yes (Death)
  Sender: FDA-Public Use
  Company Number: None

PATIENT
  Age: 85 Year
  Sex: Female

DRUGS (6)
  1. OXYBUTIN [Concomitant]
     Active Substance: OXYBUTYNIN
  2. PRENISONE [Concomitant]
  3. RANITIDINE. [Concomitant]
     Active Substance: RANITIDINE
  4. SIMVASTATIN. [Concomitant]
     Active Substance: SIMVASTATIN
  5. ZYTIGA [Suspect]
     Active Substance: ABIRATERONE ACETATE
     Indication: PROSTATE CANCER
     Route: 048
     Dates: start: 201504, end: 20171006
  6. LISINOPRIL. [Concomitant]
     Active Substance: LISINOPRIL

REACTIONS (1)
  - Death [None]

NARRATIVE: CASE EVENT DATE: 20171006
